FAERS Safety Report 21483801 (Version 2)
Quarter: 2022Q4

REPORT INFORMATION
  Report Type: Report from Study
  Country: US (occurrence: US)
  Receive Date: 20221020
  Receipt Date: 20221110
  Transmission Date: 20230112
  Serious: Yes (Other)
  Sender: FDA-Public Use
  Company Number: US-GILEAD-2022-0602035

PATIENT
  Age: 25 Year
  Sex: Female

DRUGS (5)
  1. AZTREONAM LYSINE [Suspect]
     Active Substance: AZTREONAM LYSINE
     Indication: Cystic fibrosis
     Dosage: 75 MG, TID ALTERNATE EVERY OTHER 28 DAYS AND 28 DAYS OFF
     Route: 055
  2. SYMDEKO [Concomitant]
     Active Substance: IVACAFTOR\TEZACAFTOR
     Dosage: 100/150MG; 150MG TABS
  3. TYMLOS [Concomitant]
     Active Substance: ABALOPARATIDE
     Dosage: 3120 MCG/1.56 ML MULTI-DOSE PEN
  4. TOBI [Concomitant]
     Active Substance: TOBRAMYCIN
     Dosage: TOBI INHL 300MG/5ML AMP
  5. PULMOZYME [Concomitant]
     Active Substance: DORNASE ALFA
     Dosage: INHALE THE CONTENTS OF 1 AMPULE (2.5 MG) BY NEBULIZER TWICE A DAY

REACTIONS (1)
  - Cystic fibrosis [Unknown]

NARRATIVE: CASE EVENT DATE: 20220901
